FAERS Safety Report 13321708 (Version 1)
Quarter: 2017Q1

REPORT INFORMATION
  Report Type: Spontaneous
  Country: US (occurrence: US)
  Receive Date: 20170310
  Receipt Date: 20170310
  Transmission Date: 20170428
  Serious: Yes (Other)
  Sender: FDA-Public Use
  Company Number: US-PFIZER INC-2017097263

PATIENT

DRUGS (1)
  1. LYRICA [Suspect]
     Active Substance: PREGABALIN
     Dosage: UNK

REACTIONS (15)
  - Headache [Unknown]
  - Dizziness [Unknown]
  - Chills [Unknown]
  - Weight fluctuation [Unknown]
  - Diarrhoea [Unknown]
  - Anxiety [Unknown]
  - Hot flush [Unknown]
  - Feeling abnormal [Unknown]
  - Suicidal ideation [Unknown]
  - Depression [Unknown]
  - Insomnia [Unknown]
  - Withdrawal syndrome [Unknown]
  - Paraesthesia [Unknown]
  - Vomiting [Unknown]
  - Memory impairment [Recovered/Resolved]
